FAERS Safety Report 7441671-5 (Version None)
Quarter: 2011Q2

REPORT INFORMATION
  Report Type: 
  Country: None (occurrence: None)
  Receive Date: 20110408
  Receipt Date: 20110321
  Transmission Date: 20111010
  Serious: Yes (Hospitalization)
  Sender: FDA-Public Use
  Company Number: US-IGSA-IG791

PATIENT
  Age: 61 Year
  Sex: Female
  Weight: 77 kg

DRUGS (1)
  1. FLEBOGAMMA [Suspect]
     Indication: NON-HODGKIN'S LYMPHOMA
     Dosage: 35 G
     Dates: start: 20110217, end: 20110224

REACTIONS (5)
  - CHILLS [None]
  - INFUSION RELATED REACTION [None]
  - DYSPNOEA [None]
  - TREMOR [None]
  - ELECTROCARDIOGRAM T WAVE INVERSION [None]
